FAERS Safety Report 6934525-1 (Version None)
Quarter: 2010Q3

REPORT INFORMATION
  Report Type: 
  Country: None (occurrence: None)
  Receive Date: 20100820
  Receipt Date: 20100812
  Transmission Date: 20110219
  Serious: Yes (Hospitalization, Other)
  Sender: FDA-Public Use
  Company Number: DE-ABBOTT-10P-062-0658583-00

PATIENT
  Weight: 72 kg

DRUGS (25)
  1. HUMIRA [Suspect]
     Indication: RHEUMATOID ARTHRITIS
     Route: 058
     Dates: start: 20050401, end: 20090130
  2. DECORTIN [Concomitant]
     Indication: RHEUMATOID ARTHRITIS
     Route: 048
     Dates: end: 20100401
  3. DECORTIN [Concomitant]
     Route: 048
     Dates: start: 20100401
  4. MTX [Concomitant]
     Indication: RHEUMATOID ARTHRITIS
     Dosage: 15 MG WEEKLY
     Route: 048
     Dates: start: 20061201, end: 20090201
  5. MTX [Concomitant]
     Dosage: 15 MG WEEKLY
     Route: 048
     Dates: start: 20090701
  6. MTX [Concomitant]
     Route: 048
     Dates: start: 19960501, end: 20000301
  7. MTX [Concomitant]
     Route: 048
     Dates: start: 20001001
  8. MTX [Concomitant]
     Route: 048
     Dates: start: 20050801
  9. KARVEZIDE [Concomitant]
     Indication: HYPERTENSION
     Dosage: 150/1.5 DAILY
     Route: 048
     Dates: start: 20050301
  10. CLONIDINE [Concomitant]
     Indication: HYPERTENSION
     Dates: start: 20050701
  11. MOXONIDIN [Concomitant]
     Indication: HYPERTENSION
     Route: 048
     Dates: start: 20071101
  12. PANTOPRAZOLE SODIUM [Concomitant]
     Indication: GASTRIC DISORDER
     Route: 048
     Dates: start: 20000101
  13. PANTOPRAZOLE SODIUM [Concomitant]
     Indication: PROPHYLAXIS
  14. CALCIMAGON-D3 [Concomitant]
     Indication: OSTEOPOROSIS PROPHYLAXIS
     Route: 048
     Dates: start: 20050701
  15. VIANI [Concomitant]
     Indication: CHRONIC OBSTRUCTIVE PULMONARY DISEASE
     Route: 055
     Dates: start: 20090301
  16. LODOTRA [Concomitant]
     Indication: PRODUCT USED FOR UNKNOWN INDICATION
     Dosage: IN THE MORNING
  17. METEX [Concomitant]
     Indication: PRODUCT USED FOR UNKNOWN INDICATION
     Dosage: 15 MG PER WEEK
  18. FOLSAN [Concomitant]
     Indication: PRODUCT USED FOR UNKNOWN INDICATION
  19. LEVOTHYROXINE SODIUM [Concomitant]
     Indication: PRODUCT USED FOR UNKNOWN INDICATION
  20. LEVOTHYROXINE SODIUM [Concomitant]
  21. VALORON N [Concomitant]
     Indication: PRODUCT USED FOR UNKNOWN INDICATION
  22. SERETIDE [Concomitant]
     Indication: PRODUCT USED FOR UNKNOWN INDICATION
     Dosage: 2-50/250 PUFFS DAILY
     Dates: start: 20100401
  23. SIMVAHEXAL [Concomitant]
     Indication: PRODUCT USED FOR UNKNOWN INDICATION
  24. TOREM [Concomitant]
     Indication: PRODUCT USED FOR UNKNOWN INDICATION
  25. ERYTHROPOETIN [Concomitant]
     Indication: PRODUCT USED FOR UNKNOWN INDICATION
     Dates: end: 20100301

REACTIONS (10)
  - CHRONIC OBSTRUCTIVE PULMONARY DISEASE [None]
  - DEHYDRATION [None]
  - DUODENITIS [None]
  - FEMORAL NECK FRACTURE [None]
  - GASTRITIS [None]
  - GASTROENTERITIS [None]
  - HIATUS HERNIA [None]
  - INTERVERTEBRAL DISC INJURY [None]
  - RENAL FUNCTION TEST ABNORMAL [None]
  - TRANSAMINASES INCREASED [None]
